FAERS Safety Report 6928773-4 (Version None)
Quarter: 2010Q3

REPORT INFORMATION
  Report Type: 
  Country: None (occurrence: None)
  Receive Date: 20100817
  Receipt Date: 20100806
  Transmission Date: 20110219
  Serious: Yes (Other)
  Sender: FDA-Public Use
  Company Number: US-PFIZER INC-2010048237

PATIENT
  Sex: Male

DRUGS (1)
  1. SUTENT [Suspect]
     Indication: METASTATIC RENAL CELL CARCINOMA
     Dosage: 50 MG, 1X/DAY, 4/2 CYCLE
     Route: 048
     Dates: start: 20100414

REACTIONS (7)
  - CHROMATURIA [None]
  - COGNITIVE DISORDER [None]
  - HALLUCINATION, VISUAL [None]
  - HYPERTENSION [None]
  - MOOD SWINGS [None]
  - PALMAR-PLANTAR ERYTHRODYSAESTHESIA SYNDROME [None]
  - SKIN EXFOLIATION [None]
